FAERS Safety Report 12790899 (Version 1)
Quarter: 2016Q3

REPORT INFORMATION
  Report Type: Spontaneous
  Country: FI (occurrence: FI)
  Receive Date: 20160929
  Receipt Date: 20160929
  Transmission Date: 20161109
  Serious: Yes (Disabling)
  Sender: FDA-Public Use
  Company Number: FI-SUN PHARMACEUTICAL INDUSTRIES LTD-2016RR-124521

PATIENT
  Age: 80 Year
  Sex: Male

DRUGS (7)
  1. LITALGIN [Concomitant]
     Active Substance: PITOFENONE
     Indication: PAIN
     Dosage: PER NEED
     Route: 048
     Dates: start: 20121123
  2. MAREVAN FORTE [Concomitant]
     Active Substance: WARFARIN SODIUM
     Indication: PULMONARY EMBOLISM
     Dosage: UNK
     Route: 048
     Dates: start: 20120102
  3. PEGORION [Concomitant]
     Indication: CONSTIPATION
     Dosage: PER NEED
     Route: 048
     Dates: start: 20131003
  4. SPESICOR DOS [Concomitant]
     Indication: CORONARY ARTERY DISEASE
     Dosage: 47.5 MG, DAILY
     Route: 048
     Dates: start: 20121123
  5. CARDACE [Concomitant]
     Active Substance: RAMIPRIL
     Indication: HYPERTENSION
     Dosage: 5 MG, DAILY
     Route: 048
     Dates: start: 20121123
  6. PANADOL FORTE [Concomitant]
     Active Substance: ACETAMINOPHEN\CAFFEINE
     Indication: PAIN
     Dosage: PER NEED
     Route: 048
     Dates: start: 20160627
  7. ATORVASTATIN ORION [Suspect]
     Active Substance: ATORVASTATIN CALCIUM
     Indication: HYPERCHOLESTEROLAEMIA
     Dosage: 40 MG, DAILY
     Route: 048
     Dates: start: 20160720, end: 20160907

REACTIONS (1)
  - Polymyalgia rheumatica [Unknown]

NARRATIVE: CASE EVENT DATE: 201607
